FAERS Safety Report 9380775 (Version 1)
Quarter: 2013Q3

REPORT INFORMATION
  Report Type: Report from Study
  Country: US (occurrence: US)
  Receive Date: 20130702
  Receipt Date: 20130702
  Transmission Date: 20140515
  Serious: Yes (Hospitalization)
  Sender: FDA-Public Use
  Company Number: US-PFIZER INC-HQ9258801AUG2000

PATIENT
  Age: 57 Year
  Sex: Male
  Weight: 88.9 kg

DRUGS (10)
  1. TEMSIROLIMUS [Suspect]
     Indication: RENAL CELL CARCINOMA
     Dosage: 75 MG, WEEKLY
     Route: 042
     Dates: start: 20000420, end: 20000720
  2. AMLODIPINE BESILATE [Concomitant]
     Dosage: UNK
     Route: 048
     Dates: end: 20000727
  3. CHLORPHENIRAMINE/PSEUDOEPHEDRINE [Concomitant]
     Dosage: UNK
     Route: 048
  4. DIPHENHYDRAMINE HYDROCHLORIDE [Concomitant]
     Dosage: UNK
     Route: 048
     Dates: start: 20000229
  5. FLUTICASONE PROPIONATE [Concomitant]
     Dosage: UNK
     Route: 055
  6. HYDROMORPHONE HYDROCHLORIDE [Concomitant]
     Dosage: UNK
     Route: 048
  7. METHOCARBAMOL [Concomitant]
     Dosage: UNK
     Route: 048
  8. MORPHINE SULFATE [Concomitant]
     Dosage: UNK
     Route: 048
     Dates: start: 200003
  9. NAPROXEN SODIUM [Concomitant]
     Dosage: UNK
     Route: 048
     Dates: start: 20000407, end: 20000727
  10. WARFARIN SODIUM [Concomitant]
     Dosage: UNK
     Route: 048
     Dates: start: 200001, end: 20000727

REACTIONS (1)
  - Meningitis [Recovered/Resolved]
